FAERS Safety Report 5574428-0 (Version None)
Quarter: 2007Q4

REPORT INFORMATION
  Report Type: 
  Country: None (occurrence: None)
  Receive Date: 20071227
  Receipt Date: 20071219
  Transmission Date: 20080405
  Serious: Yes (Other)
  Sender: FDA-Public Use
  Company Number: US-ROCHE-534769

PATIENT
  Age: 52 Year
  Sex: Female
  Weight: 93.4 kg

DRUGS (8)
  1. PEGASYS [Suspect]
     Indication: HEPATITIS C
     Route: 058
     Dates: start: 20071030
  2. RIBAVIRIN [Suspect]
     Indication: HEPATITIS C
     Route: 048
     Dates: start: 20071030
  3. LEXAPRO [Concomitant]
  4. PRILOSEC [Concomitant]
  5. OXYCODONE HCL [Concomitant]
  6. FOLIC ACID [Concomitant]
  7. MULTIVITAMIN NOS [Concomitant]
  8. OXYCONTIN [Concomitant]
     Indication: PAIN

REACTIONS (4)
  - ENCEPHALOPATHY [None]
  - LOSS OF CONSCIOUSNESS [None]
  - PAIN [None]
  - ROAD TRAFFIC ACCIDENT [None]
